FAERS Safety Report 9633303 (Version 1)
Quarter: 2013Q4

REPORT INFORMATION
  Report Type: Spontaneous
  Country: US (occurrence: US)
  Receive Date: 20131021
  Receipt Date: 20131021
  Transmission Date: 20140711
  Serious: Yes (Other)
  Sender: FDA-Public Use
  Company Number: US-PFIZER INC-2013297873

PATIENT
  Sex: Female

DRUGS (1)
  1. EXEMESTANE [Suspect]
     Dosage: UNK

REACTIONS (11)
  - Blindness [Unknown]
  - Myalgia [Unknown]
  - Arthralgia [Unknown]
  - Pruritus [Unknown]
  - Increased tendency to bruise [Unknown]
  - Paraesthesia [Unknown]
  - Hypoaesthesia [Unknown]
  - Insomnia [Unknown]
  - Oropharyngeal pain [Unknown]
  - Swollen tongue [Unknown]
  - Faeces discoloured [Unknown]
